FAERS Safety Report 18381357 (Version 1)
Quarter: 2020Q4

REPORT INFORMATION
  Report Type: Spontaneous
  Country: GB (occurrence: GB)
  Receive Date: 20201014
  Receipt Date: 20201014
  Transmission Date: 20210114
  Serious: Yes (Death)
  Sender: FDA-Public Use
  Company Number: GB-009507513-2010GBR002470

PATIENT
  Age: 80 Year
  Sex: Female
  Weight: 68.4 kg

DRUGS (5)
  1. PEMBROLIZUMAB. [Suspect]
     Active Substance: PEMBROLIZUMAB
     Indication: LUNG SQUAMOUS CELL CARCINOMA STAGE IV
     Dosage: 200MG
     Route: 042
     Dates: start: 20181022, end: 20181022
  2. DALTEPARIN SODIUM [Concomitant]
     Active Substance: DALTEPARIN SODIUM
     Indication: PULMONARY EMBOLISM
     Dosage: UNK
     Dates: start: 201809
  3. ADCAL-D3 [Concomitant]
     Active Substance: CALCIUM CARBONATE\CHOLECALCIFEROL
  4. TURMERIC [Concomitant]
     Active Substance: HERBALS\TURMERIC
  5. OXYTETRACYCLINE [Concomitant]
     Active Substance: OXYTETRACYCLINE
     Indication: BLEPHARITIS

REACTIONS (5)
  - Dysarthria [Not Recovered/Not Resolved]
  - Agitation [Not Recovered/Not Resolved]
  - Lacunar stroke [Fatal]
  - Facial paralysis [Not Recovered/Not Resolved]
  - Sepsis [Not Recovered/Not Resolved]

NARRATIVE: CASE EVENT DATE: 201810
